FAERS Safety Report 17717739 (Version 2)
Quarter: 2020Q2

REPORT INFORMATION
  Report Type: Spontaneous
  Country: US (occurrence: US)
  Receive Date: 20200428
  Receipt Date: 20200619
  Transmission Date: 20200714
  Serious: No
  Sender: FDA-Public Use
  Company Number: US-ASTRAZENECA-2020SE52196

PATIENT
  Sex: Female

DRUGS (3)
  1. PULMICORT FLEXHALER [Suspect]
     Active Substance: BUDESONIDE
     Indication: ASTHMA
     Dosage: 90 MCG, TWICE DAILY, AS NEEDED
     Route: 055
     Dates: start: 202003
  2. PULMICORT FLEXHALER [Suspect]
     Active Substance: BUDESONIDE
     Indication: ASTHMA
     Route: 055
     Dates: start: 20200412
  3. PULMICORT FLEXHALER [Suspect]
     Active Substance: BUDESONIDE
     Indication: ASTHMA
     Dosage: 180 MCG, TWICE DAILY, AS NEEDED
     Route: 055
     Dates: start: 2006

REACTIONS (6)
  - Chest discomfort [Unknown]
  - Intentional product misuse [Recovered/Resolved]
  - Drug delivery system issue [Unknown]
  - Nasopharyngitis [Unknown]
  - Wrong technique in device usage process [Unknown]
  - Hypersensitivity [Unknown]
